FAERS Safety Report 6719481-3 (Version None)
Quarter: 2010Q2

REPORT INFORMATION
  Report Type: 
  Country: None (occurrence: None)
  Receive Date: 20100511
  Receipt Date: 20100501
  Transmission Date: 20101027
  Serious: Yes (Hospitalization, Other)
  Sender: FDA-Public Use
  Company Number: US-ROCHE-693074

PATIENT
  Sex: Female

DRUGS (6)
  1. HERCEPTIN [Suspect]
     Indication: DRUG USE FOR UNKNOWN INDICATION
     Dosage: 4TH CYCLE.
     Route: 065
  2. HERCEPTIN [Suspect]
     Route: 065
  3. TAXOTERE [Concomitant]
     Dosage: 4TH CYCLE
  4. TAXOTERE [Concomitant]
  5. CARBOPLATIN [Concomitant]
     Dosage: 4TH CYCLE
  6. CARBOPLATIN [Concomitant]

REACTIONS (6)
  - BRAIN NATRIURETIC PEPTIDE INCREASED [None]
  - DIASTOLIC DYSFUNCTION [None]
  - DIVERTICULUM [None]
  - NAUSEA [None]
  - PULMONARY HYPERTENSION [None]
  - PYREXIA [None]
